FAERS Safety Report 15998558 (Version 1)
Quarter: 2019Q1

REPORT INFORMATION
  Report Type: Spontaneous
  Country: US (occurrence: US)
  Receive Date: 20190223
  Receipt Date: 20190223
  Transmission Date: 20190418
  Serious: No
  Sender: FDA-Public Use
  Company Number: US-TEVA-2019-US-1014127

PATIENT
  Age: 62 Year
  Sex: Female

DRUGS (1)
  1. PROAIR RESPICLICK [Suspect]
     Active Substance: ALBUTEROL SULFATE
     Route: 065
     Dates: start: 201902

REACTIONS (2)
  - Asthma [Unknown]
  - Device malfunction [Unknown]

NARRATIVE: CASE EVENT DATE: 201902
